FAERS Safety Report 14842289 (Version 3)
Quarter: 2018Q2

REPORT INFORMATION
  Report Type: Spontaneous
  Country: DE (occurrence: DE)
  Receive Date: 20180503
  Receipt Date: 20180606
  Transmission Date: 20180711
  Serious: Yes (Hospitalization)
  Sender: FDA-Public Use
  Company Number: DE-AUROBINDO-AUR-APL-2018-023104

PATIENT
  Age: 79 Year
  Sex: Female

DRUGS (79)
  1. RAMIPRIL. [Suspect]
     Active Substance: RAMIPRIL
     Dosage: 5 MILLIGRAM
     Route: 048
  2. OXYCODONE [Suspect]
     Active Substance: OXYCODONE
     Route: 065
  3. OXYCODONE [Suspect]
     Active Substance: OXYCODONE
     Dosage: 20 MG, 1-0-1-0
     Route: 065
  4. AMLODIPINE [Suspect]
     Active Substance: AMLODIPINE BESYLATE
     Route: 048
  5. PREGABALIN. [Suspect]
     Active Substance: PREGABALIN
     Indication: PRODUCT USED FOR UNKNOWN INDICATION
     Dosage: 20 MILLIGRAM
     Route: 065
  6. PREGABALIN. [Suspect]
     Active Substance: PREGABALIN
     Dosage: 25 MG, 1-0-1-0
     Route: 065
  7. FENTANYL. [Suspect]
     Active Substance: FENTANYL
     Route: 065
  8. URAPIDIL [Suspect]
     Active Substance: URAPIDIL
     Dosage: 60 MG, 1-0-1-0 ()
     Route: 065
  9. URAPIDIL [Suspect]
     Active Substance: URAPIDIL
     Route: 065
  10. METOPROLOL. [Suspect]
     Active Substance: METOPROLOL
     Route: 048
  11. METOPROLOL. [Suspect]
     Active Substance: METOPROLOL
     Dosage: 23.75 MG, 1-0-1-0
     Route: 048
  12. AMITRIPTYLINE [Suspect]
     Active Substance: AMITRIPTYLINE
     Dosage: 50 MG, 1-0-0.5-0
     Route: 065
  13. SIMVASTATIN. [Concomitant]
     Active Substance: SIMVASTATIN
     Indication: PRODUCT USED FOR UNKNOWN INDICATION
     Dosage: 20 MILLIGRAM, 20 MG, 0-0-1-0
     Route: 065
  14. SIMVASTATIN. [Concomitant]
     Active Substance: SIMVASTATIN
     Dosage: 20 MG, 0-0-1-0
  15. TORASEMID [Concomitant]
     Active Substance: TORSEMIDE
     Route: 065
  16. FENTANYL. [Suspect]
     Active Substance: FENTANYL
     Indication: PRODUCT USED FOR UNKNOWN INDICATION
     Dosage: 100 MICROGRAM, WECHSEL ALLE 3D
     Route: 062
  17. URAPIDIL [Suspect]
     Active Substance: URAPIDIL
     Dosage: ()
     Route: 065
  18. METOPROLOL. [Suspect]
     Active Substance: METOPROLOL
     Indication: PRODUCT USED FOR UNKNOWN INDICATION
     Dosage: 23.75 MILLIGRAM, 23.75 MG, 1-0-1-0
     Route: 065
  19. AMITRIPTYLINE [Suspect]
     Active Substance: AMITRIPTYLINE
     Dosage: 50 MG, 1-0-0.5-0 ()
     Route: 065
  20. DEKRISTOL [Concomitant]
     Active Substance: CHOLECALCIFEROL
     Dosage: 20000 IE, 1X/WEEK
  21. TORASEMID [Concomitant]
     Active Substance: TORSEMIDE
     Route: 065
  22. TORASEMID [Concomitant]
     Active Substance: TORSEMIDE
     Dosage: 5 MG, 1-0-0-0
  23. FENTANYL. [Suspect]
     Active Substance: FENTANYL
     Dosage: 100 ?G, WECHSEL ALLE 3D ()
     Route: 062
  24. FENTANYL. [Suspect]
     Active Substance: FENTANYL
     Route: 065
  25. URAPIDIL [Suspect]
     Active Substance: URAPIDIL
     Indication: PRODUCT USED FOR UNKNOWN INDICATION
     Dosage: 60 MILLIGRAM, 60 MG, 1-0-1-0
     Route: 065
  26. URAPIDIL [Suspect]
     Active Substance: URAPIDIL
     Dosage: 60 MG, 1-0-1-0
     Route: 065
  27. AMITRIPTYLINE [Suspect]
     Active Substance: AMITRIPTYLINE
     Dosage: 1-0-0.5-0 : FREQUENCY
     Route: 065
  28. TORASEMID [Concomitant]
     Active Substance: TORSEMIDE
     Dosage: ()
  29. TORASEMID [Concomitant]
     Active Substance: TORSEMIDE
     Dosage: 5 MG, 1-0-0-0 ()
  30. RAMIPRIL. [Suspect]
     Active Substance: RAMIPRIL
     Dosage: 5 MILLIGRAM
     Route: 048
  31. OXYCODONE [Suspect]
     Active Substance: OXYCODONE
     Indication: PRODUCT USED FOR UNKNOWN INDICATION
     Dosage: 20 MILLIGRAM, TWO TIMES A DAY
     Route: 065
  32. PREGABALIN. [Suspect]
     Active Substance: PREGABALIN
     Dosage: 50 MILLIGRAM
     Route: 065
  33. PREGABALIN. [Suspect]
     Active Substance: PREGABALIN
     Route: 065
  34. FENTANYL. [Suspect]
     Active Substance: FENTANYL
     Dosage: ()
     Route: 062
  35. METOPROLOL. [Suspect]
     Active Substance: METOPROLOL
     Dosage: 23.75 MG, 1-0-1-0 ()
     Route: 065
  36. METOPROLOL. [Suspect]
     Active Substance: METOPROLOL
     Route: 048
  37. DEKRISTOL [Concomitant]
     Active Substance: CHOLECALCIFEROL
     Dosage: 20000 IE, 1X/WEEK ()
  38. DEKRISTOL [Concomitant]
     Active Substance: CHOLECALCIFEROL
     Route: 065
  39. PANTOPRAZOL                        /01263201/ [Concomitant]
     Active Substance: PANTOPRAZOLE
     Indication: PRODUCT USED FOR UNKNOWN INDICATION
     Dosage: 40 MILLIGRAM, ONCE A DAY, 40 MG, 1-0-0-0
     Route: 065
  40. CARBIMAZOLE [Concomitant]
     Active Substance: CARBIMAZOLE
     Dosage: 5 MG, 1-0-0-0 ()
  41. SITAGLIPTIN [Concomitant]
     Active Substance: SITAGLIPTIN
     Indication: PRODUCT USED FOR UNKNOWN INDICATION
     Dosage: 50 MILLIGRAM, ONCE A DAY, 50 MG, 1-0-0-0
     Route: 065
  42. SITAGLIPTIN [Concomitant]
     Active Substance: SITAGLIPTIN
     Route: 065
  43. RAMIPRIL. [Suspect]
     Active Substance: RAMIPRIL
     Dosage: 5 MG, 0.5-0-0-0.5
     Route: 048
  44. OXYCODONE [Suspect]
     Active Substance: OXYCODONE
     Route: 065
  45. PREGABALIN. [Suspect]
     Active Substance: PREGABALIN
     Dosage: 25 MG, 1-0-1-0 ()
     Route: 065
  46. FENTANYL. [Suspect]
     Active Substance: FENTANYL
     Dosage: 100 ?G, WECHSEL ALLE 3D
     Route: 062
  47. DEKRISTOL [Concomitant]
     Active Substance: CHOLECALCIFEROL
     Route: 065
  48. CARBIMAZOLE [Concomitant]
     Active Substance: CARBIMAZOLE
     Indication: PRODUCT USED FOR UNKNOWN INDICATION
     Dosage: 5 MILLIGRAM, ONCE A DAY, 5 MG, 1-0-0-0
     Route: 065
  49. CARBIMAZOLE [Concomitant]
     Active Substance: CARBIMAZOLE
     Dosage: ()
  50. CARBIMAZOLE [Concomitant]
     Active Substance: CARBIMAZOLE
     Route: 065
  51. CARBIMAZOLE [Concomitant]
     Active Substance: CARBIMAZOLE
     Route: 065
  52. RAMIPRIL. [Suspect]
     Active Substance: RAMIPRIL
     Indication: PRODUCT USED FOR UNKNOWN INDICATION
     Dosage: 5 MILLIGRAM, TWO TIMES A DAY
     Route: 065
  53. AMLODIPINE [Suspect]
     Active Substance: AMLODIPINE BESYLATE
     Route: 048
  54. DEKRISTOL [Concomitant]
     Active Substance: CHOLECALCIFEROL
     Indication: PRODUCT USED FOR UNKNOWN INDICATION
     Dosage: UNK, 20000 IE, 1X/WEEK
     Route: 065
  55. DEKRISTOL [Concomitant]
     Active Substance: CHOLECALCIFEROL
     Dosage: ()
  56. CARBIMAZOLE [Concomitant]
     Active Substance: CARBIMAZOLE
     Dosage: 5 MG, 1-0-0-0
  57. TORASEMID [Concomitant]
     Active Substance: TORSEMIDE
     Indication: PRODUCT USED FOR UNKNOWN INDICATION
     Dosage: 5 MILLIGRAM, ONCE A DAY, 5 MG, 1-0-0-0
     Route: 065
  58. SITAGLIPTIN [Concomitant]
     Active Substance: SITAGLIPTIN
     Dosage: ()
  59. SITAGLIPTIN [Concomitant]
     Active Substance: SITAGLIPTIN
     Route: 065
  60. MOVICOL [Concomitant]
     Active Substance: POLYETHYLENE GLYCOL 3350\POTASSIUM CHLORIDE\SODIUM BICARBONATE\SODIUM CHLORIDE
     Dosage: NK MG, 1-1-0-0 ()
  61. AMLODIPINE [Suspect]
     Active Substance: AMLODIPINE BESYLATE
     Indication: PRODUCT USED FOR UNKNOWN INDICATION
     Dosage: 5 MILLIGRAM
     Route: 065
  62. METOPROLOL. [Suspect]
     Active Substance: METOPROLOL
     Dosage: ()
     Route: 065
  63. AMITRIPTYLINE [Suspect]
     Active Substance: AMITRIPTYLINE
     Dosage: ()
     Route: 065
  64. AMITRIPTYLINE [Suspect]
     Active Substance: AMITRIPTYLINE
     Dosage: 1-0-0.5-0 : FREQUENCY
     Route: 065
  65. SIMVASTATIN. [Concomitant]
     Active Substance: SIMVASTATIN
     Dosage: ()
  66. SIMVASTATIN. [Concomitant]
     Active Substance: SIMVASTATIN
     Route: 065
  67. DULOXETINA                         /01749301/ [Concomitant]
     Active Substance: DULOXETINE
     Indication: PRODUCT USED FOR UNKNOWN INDICATION
     Dosage: 30 MILLIGRAM, 30 MG, 1-0-1-0
     Route: 065
  68. SITAGLIPTIN [Concomitant]
     Active Substance: SITAGLIPTIN
     Dosage: 50 MG, 1-0-0-0
  69. MOVICOL [Concomitant]
     Active Substance: POLYETHYLENE GLYCOL 3350\POTASSIUM CHLORIDE\SODIUM BICARBONATE\SODIUM CHLORIDE
     Indication: PRODUCT USED FOR UNKNOWN INDICATION
     Dosage: UNK, NK MG, 1-1-0-0
     Route: 065
  70. MOVICOL [Concomitant]
     Active Substance: POLYETHYLENE GLYCOL 3350\POTASSIUM CHLORIDE\SODIUM BICARBONATE\SODIUM CHLORIDE
     Dosage: ()
  71. RAMIPRIL. [Suspect]
     Active Substance: RAMIPRIL
     Dosage: 5 MG, 0.5-0-0-0.5 ()
     Route: 048
  72. OXYCODONE [Suspect]
     Active Substance: OXYCODONE
     Dosage: 20 MG, 1-0-1-0 ()
     Route: 065
  73. METAMIZOL                          /06276701/ [Suspect]
     Active Substance: METAMIZOLE
     Indication: PRODUCT USED FOR UNKNOWN INDICATION
     Dosage: 1 GRAM, 1 G, 1-1-1-0
     Route: 065
  74. URAPIDIL [Suspect]
     Active Substance: URAPIDIL
     Route: 065
  75. AMITRIPTYLINE [Suspect]
     Active Substance: AMITRIPTYLINE
     Indication: PRODUCT USED FOR UNKNOWN INDICATION
     Dosage: 50 MILLIGRAM, 50 MG, 1-0-0.5-0
     Route: 065
  76. SIMVASTATIN. [Concomitant]
     Active Substance: SIMVASTATIN
     Dosage: 20 MG, 0-0-1-0 ()
  77. SIMVASTATIN. [Concomitant]
     Active Substance: SIMVASTATIN
     Route: 065
  78. SITAGLIPTIN [Concomitant]
     Active Substance: SITAGLIPTIN
     Dosage: 50 MG, 1-0-0-0 ()
  79. MOVICOL [Concomitant]
     Active Substance: POLYETHYLENE GLYCOL 3350\POTASSIUM CHLORIDE\SODIUM BICARBONATE\SODIUM CHLORIDE
     Dosage: NK MG, 1-1-0-0 ()

REACTIONS (4)
  - Asthenia [Unknown]
  - General physical health deterioration [Unknown]
  - Hypotension [Unknown]
  - Dizziness [Unknown]
